FAERS Safety Report 16765416 (Version 2)
Quarter: 2019Q3

REPORT INFORMATION
  Report Type: Spontaneous
  Country: TW (occurrence: TW)
  Receive Date: 20190903
  Receipt Date: 20190910
  Transmission Date: 20191005
  Serious: Yes (Other)
  Sender: FDA-Public Use
  Company Number: TW-TERSERA THERAPEUTICS LLC-2019TRS001704

PATIENT

DRUGS (4)
  1. LETROZOLE. [Suspect]
     Active Substance: LETROZOLE
     Indication: BREAST CANCER FEMALE
     Dosage: UNK
     Route: 065
     Dates: start: 201610
  2. ZOLADEX [Suspect]
     Active Substance: GOSERELIN ACETATE
     Indication: BREAST CANCER FEMALE
     Dosage: FEMARA + GOSERELIN X 13 TIMES
     Route: 058
  3. ZOLADEX [Suspect]
     Active Substance: GOSERELIN ACETATE
     Route: 058
  4. PALBOCICLIB [Suspect]
     Active Substance: PALBOCICLIB
     Indication: BREAST CANCER FEMALE
     Dosage: UNK
     Route: 065
     Dates: start: 201610

REACTIONS (6)
  - Leukopenia [Unknown]
  - Malignant neoplasm progression [Unknown]
  - Anaemia [Unknown]
  - Carcinoembryonic antigen increased [Unknown]
  - Neutrophil count decreased [Unknown]
  - Carbohydrate antigen 15-3 increased [Unknown]

NARRATIVE: CASE EVENT DATE: 2007
